FAERS Safety Report 20692463 (Version 1)
Quarter: 2022Q2

REPORT INFORMATION
  Report Type: Spontaneous
  Country: CN (occurrence: None)
  Receive Date: 20220409
  Receipt Date: 20220409
  Transmission Date: 20220721
  Serious: Yes (Other)
  Sender: FDA-Public Use
  Company Number: CN-ROCHE-3069861

PATIENT
  Sex: Male

DRUGS (27)
  1. MABTHERA [Suspect]
     Active Substance: RITUXIMAB
     Indication: Diffuse large B-cell lymphoma
     Dosage: R-HYPER CVAD
     Route: 065
     Dates: start: 20170608
  2. MABTHERA [Suspect]
     Active Substance: RITUXIMAB
     Dosage: R-ICE
     Route: 065
     Dates: start: 20200403
  3. MABTHERA [Suspect]
     Active Substance: RITUXIMAB
     Dosage: IR2
     Route: 065
     Dates: start: 20200518
  4. MABTHERA [Suspect]
     Active Substance: RITUXIMAB
     Dosage: ZR2
     Route: 065
     Dates: start: 20210315
  5. MABTHERA [Suspect]
     Active Substance: RITUXIMAB
     Dosage: POLA-BR
     Route: 065
     Dates: start: 20210629
  6. POLATUZUMAB VEDOTIN [Suspect]
     Active Substance: POLATUZUMAB VEDOTIN
     Indication: Diffuse large B-cell lymphoma
     Dosage: POLA-BR
     Route: 065
     Dates: start: 20210629
  7. BENDAMUSTINE [Concomitant]
     Active Substance: BENDAMUSTINE
     Indication: Diffuse large B-cell lymphoma
     Dosage: POLA-BR
     Dates: start: 20210629
  8. CYCLOPHOSPHAMIDE [Concomitant]
     Active Substance: CYCLOPHOSPHAMIDE
     Indication: Diffuse large B-cell lymphoma
     Dosage: R-HYPER CVAD
     Dates: start: 20170608
  9. CYCLOPHOSPHAMIDE [Concomitant]
     Active Substance: CYCLOPHOSPHAMIDE
     Dosage: R-ICE
     Dates: start: 20200403
  10. CYCLOPHOSPHAMIDE [Concomitant]
     Active Substance: CYCLOPHOSPHAMIDE
     Dosage: FC
     Dates: start: 20200609
  11. CYCLOPHOSPHAMIDE [Concomitant]
     Active Substance: CYCLOPHOSPHAMIDE
     Dosage: BUCY+ATG
     Dates: start: 20210920
  12. VINCRISTINE [Concomitant]
     Active Substance: VINCRISTINE
     Indication: Diffuse large B-cell lymphoma
     Dosage: R-HYPER CVAD
     Dates: start: 20170608
  13. DOXORUBICIN [Concomitant]
     Active Substance: DOXORUBICIN
     Indication: Diffuse large B-cell lymphoma
     Dosage: R-HYPER CVAD
     Dates: start: 20170608
  14. DEXAMETHASONE [Concomitant]
     Active Substance: DEXAMETHASONE
     Indication: Diffuse large B-cell lymphoma
     Dosage: R-HYPER CVAD
     Dates: start: 20170608
  15. CYTARABINE [Concomitant]
     Active Substance: CYTARABINE
     Indication: Diffuse large B-cell lymphoma
     Dosage: R-HYPER CVAD
     Dates: start: 20170608
  16. METHOTREXATE [Concomitant]
     Active Substance: METHOTREXATE
     Indication: Diffuse large B-cell lymphoma
     Dosage: R-HYPER CVAD
     Dates: start: 20170608
  17. CARBOPLATIN [Concomitant]
     Active Substance: CARBOPLATIN
     Indication: Diffuse large B-cell lymphoma
     Dosage: R-ICE
     Dates: start: 20200403
  18. ETOPOSIDE [Concomitant]
     Active Substance: ETOPOSIDE
     Indication: Diffuse large B-cell lymphoma
     Dosage: R-ICE
     Dates: start: 20200403
  19. IBRUTINIB [Concomitant]
     Active Substance: IBRUTINIB
     Indication: Diffuse large B-cell lymphoma
     Dosage: IR2
     Dates: start: 20200518
  20. IBRUTINIB [Concomitant]
     Active Substance: IBRUTINIB
     Dosage: PER DAY
     Dates: end: 20201223
  21. LENALIDOMIDE [Concomitant]
     Active Substance: LENALIDOMIDE
     Indication: Diffuse large B-cell lymphoma
     Dosage: IR2
     Dates: start: 20200518
  22. LENALIDOMIDE [Concomitant]
     Active Substance: LENALIDOMIDE
     Dosage: ZR2:10-20MG, DAY1-21
     Dates: start: 20210315
  23. FLUDARABINE [Concomitant]
     Active Substance: FLUDARABINE PHOSPHATE
     Dosage: FC
     Dates: start: 20200609
  24. BEBTELOVIMAB [Concomitant]
     Active Substance: BEBTELOVIMAB
     Indication: Diffuse large B-cell lymphoma
     Dates: start: 20210120
  25. ZANUBRUTINIB [Concomitant]
     Active Substance: ZANUBRUTINIB
     Indication: Diffuse large B-cell lymphoma
     Dosage: ZR2
     Dates: start: 20210315
  26. BUSULFAN [Concomitant]
     Active Substance: BUSULFAN
     Dosage: BUCY+ATG
     Dates: start: 20210920
  27. THYMOCYTE IMMUNE GLOBULIN NOS [Concomitant]
     Active Substance: THYMOCYTE IMMUNE GLOBULIN NOS
     Dosage: BUCY+ATG
     Dates: start: 20210920

REACTIONS (1)
  - Cystitis haemorrhagic [Unknown]

NARRATIVE: CASE EVENT DATE: 20211201
